FAERS Safety Report 8366301-X (Version None)
Quarter: 2012Q2

REPORT INFORMATION
  Report Type: 
  Country: None (occurrence: None)
  Receive Date: 20120517
  Receipt Date: 20120511
  Transmission Date: 20120825
  Serious: Yes (Other)
  Sender: FDA-Public Use
  Company Number: PHHY2012MX038889

PATIENT
  Sex: Female

DRUGS (3)
  1. IRON [Concomitant]
     Indication: BONE NEOPLASM MALIGNANT
     Dosage: UNK, EVERY 8 DAYS
  2. ZOMETA [Suspect]
     Indication: BONE NEOPLASM MALIGNANT
     Dosage: 4 MG, PER MONTH
     Route: 042
     Dates: start: 20091028, end: 20111001
  3. ZOMETA [Suspect]
     Dosage: 4 MG, UNK
     Route: 042

REACTIONS (6)
  - PYREXIA [None]
  - MALAISE [None]
  - BONE NEOPLASM MALIGNANT [None]
  - MUSCULOSKELETAL CHEST PAIN [None]
  - SKELETAL INJURY [None]
  - PAIN IN EXTREMITY [None]
